FAERS Safety Report 18333956 (Version 1)
Quarter: 2020Q3

REPORT INFORMATION
  Report Type: Spontaneous
  Country: US (occurrence: US)
  Receive Date: 20200930
  Receipt Date: 20200930
  Transmission Date: 20201103
  Serious: Yes (Life-Threatening)
  Sender: FDA-Public Use
  Company Number: None

PATIENT
  Age: 85 Year
  Sex: Male
  Weight: 69.75 kg

DRUGS (3)
  1. RETACRIT [Concomitant]
     Active Substance: EPOETIN ALFA-EPBX
     Dates: start: 20200828, end: 20200914
  2. RETACRIT [Suspect]
     Active Substance: EPOETIN ALFA-EPBX
     Indication: NEPHROGENIC ANAEMIA
     Dosage: ?          OTHER FREQUENCY:WEEKLY;?
     Route: 058
     Dates: start: 20200828, end: 20200911
  3. RETACRIT [Suspect]
     Active Substance: EPOETIN ALFA-EPBX
     Indication: DIABETIC NEPHROPATHY
     Dosage: ?          OTHER FREQUENCY:WEEKLY;?
     Route: 058
     Dates: start: 20200828, end: 20200911

REACTIONS (4)
  - Thrombocytopenic purpura [None]
  - Haemorrhage [None]
  - Immune thrombocytopenia [None]
  - Platelet count decreased [None]

NARRATIVE: CASE EVENT DATE: 20200902
